FAERS Safety Report 10051488 (Version 3)
Quarter: 2014Q2

REPORT INFORMATION
  Report Type: Report from Study
  Country: CA (occurrence: CA)
  Receive Date: 20140401
  Receipt Date: 20140423
  Transmission Date: 20141212
  Serious: Yes (Other)
  Sender: FDA-Public Use
  Company Number: CA-B.I. PHARMACEUTICALS,INC./RIDGEFIELD-2014-BI-13319CN

PATIENT
  Sex: Female

DRUGS (2)
  1. AFATINIB [Suspect]
     Indication: NON-SMALL CELL LUNG CANCER
     Dosage: 40 MG
     Route: 065
     Dates: start: 20131017, end: 20140325
  2. MEDICATION NOT FURTHER SPECIFIED [Concomitant]
     Route: 065

REACTIONS (1)
  - Malignant neoplasm progression [Unknown]
